FAERS Safety Report 5475926-0 (Version None)
Quarter: 2007Q4

REPORT INFORMATION
  Report Type: 
  Country: None (occurrence: None)
  Receive Date: 20071003
  Receipt Date: 20070921
  Transmission Date: 20080405
  Serious: Yes (Hospitalization)
  Sender: FDA-Public Use
  Company Number: FR-ELI_LILLY_AND_COMPANY-FR200705006757

PATIENT
  Age: 75 Year
  Sex: Female
  Weight: 66.3 kg

DRUGS (7)
  1. KARDEGIC [Concomitant]
  2. INEXIUM [Concomitant]
  3. FORTEO [Suspect]
     Indication: OSTEOPOROSIS
     Dosage: 20 UG, DAILY (1/D)
     Route: 058
     Dates: start: 20060308, end: 20070908
  4. LERCAN [Concomitant]
  5. PROPRANOLOL HYDROCHLORIDE [Concomitant]
  6. ALDACTONE [Concomitant]
  7. PRAVASTATIN [Concomitant]

REACTIONS (1)
  - COLITIS [None]
